FAERS Safety Report 25829271 (Version 2)
Quarter: 2025Q4

REPORT INFORMATION
  Report Type: Report from Study
  Country: US (occurrence: US)
  Receive Date: 20250922
  Receipt Date: 20251230
  Transmission Date: 20260118
  Serious: No
  Sender: TRAVERE THERAPEUTICS
  Company Number: US-TRAVERE-2025TVT01369

PATIENT
  Age: 48 Year
  Sex: Male
  Weight: 114.3 kg

DRUGS (2)
  1. FILSPARI [Suspect]
     Active Substance: SPARSENTAN
     Indication: IgA nephropathy
     Route: 048
  2. FILSPARI [Suspect]
     Active Substance: SPARSENTAN
     Route: 048
     Dates: start: 20250715

REACTIONS (7)
  - Blood glucose increased [Unknown]
  - Urine albumin/creatinine ratio increased [Unknown]
  - Urine protein/creatinine ratio increased [Unknown]
  - Urine protein/creatinine ratio increased [Unknown]
  - Cystatin C increased [Unknown]
  - Heart rate increased [Unknown]
  - Blood creatinine abnormal [Unknown]

NARRATIVE: CASE EVENT DATE: 20250918
